FAERS Safety Report 9204363 (Version 1)
Quarter: 2013Q1

REPORT INFORMATION
  Report Type: Spontaneous
  Country: US (occurrence: None)
  Receive Date: 20120709
  Receipt Date: 20120709
  Transmission Date: 20140127
  Serious: No
  Sender: FDA-Public Use
  Company Number: 2012HGS-003419

PATIENT
  Age: 64 Year
  Sex: Female
  Weight: 61.69 kg

DRUGS (11)
  1. BENLYSTA [Suspect]
     Dosage: 1 IN 28 D
     Route: 041
     Dates: start: 20120222
  2. PLAQUENIL (HYDROCHLOROQUINE) (HYDROCHLOROQUINE) [Concomitant]
  3. OMEPRAZOLE (OMEPRAZOLE) (OMEPRAZOLE) [Concomitant]
  4. NIFEDIPINE (NIFEDIPINE) (NIFEDIPINE) [Concomitant]
  5. LEVOXYL (LEVOTHYROXINE SODIUM) (LEVOTHYROXINE SODIUM) [Concomitant]
  6. MULTIVITAMIN (VIGRAN) (ERGOCALCIFEROL, ASCORBIC ACID, PYRIDOXINE HYDROCHLORIDE, THIAMINE HYDROCHLORIDE, RETINOL, RIBOFLAVIN, NICOTINAMIDE, CALCIUM PANTOTHENATE) [Concomitant]
  7. BABY ASPIRIN (ACETYLSALICYLIC ACID) (ACETYLSALICYLIC ACID) [Concomitant]
  8. VICODIN (VICODIN) (PARACETAMOL, HYDROCODONE BITARTRATE) [Concomitant]
  9. TYLENOL (PARACETAMOL) (PARACETAMOL) [Concomitant]
  10. PREDNISONE (PREDNISONE) (PREDNISONE) [Concomitant]
  11. CALCIUM WITH VITAMIN D (LEKOVIT CA) (COLECALCIFEROL, CALCIUM CARBONATE) [Concomitant]

REACTIONS (1)
  - Fatigue [None]
